FAERS Safety Report 15939779 (Version 1)
Quarter: 2019Q1

REPORT INFORMATION
  Report Type: Spontaneous
  Country: AU (occurrence: AU)
  Receive Date: 20190208
  Receipt Date: 20190208
  Transmission Date: 20190417
  Serious: Yes (Other)
  Sender: FDA-Public Use
  Company Number: AU-BAYER-2019-021912

PATIENT

DRUGS (4)
  1. FLAG-IDA [Concomitant]
     Active Substance: CYTARABINE\FLUDARABINE\GRANULOCYTE COLONY-STIMULATING FACTOR NOS\IDARUBICIN
     Dosage: UNK
     Dates: start: 201804
  2. SORAFENIB (RAF KINASE INHIBITOR) [Suspect]
     Active Substance: SORAFENIB
     Indication: ACUTE MYELOID LEUKAEMIA
     Dosage: UNK
  3. HYDROXYUREA. [Concomitant]
     Active Substance: HYDROXYUREA
  4. SORAFENIB (RAF KINASE INHIBITOR) [Suspect]
     Active Substance: SORAFENIB
     Indication: FMS-LIKE TYROSINE KINASE 3 POSITIVE
     Dosage: UNK
     Dates: start: 201804

REACTIONS (4)
  - Fms-like tyrosine kinase 3 positive [None]
  - Acute myeloid leukaemia recurrent [None]
  - Product use in unapproved indication [None]
  - Off label use [None]
